FAERS Safety Report 11572002 (Version 1)
Quarter: 2015Q3

REPORT INFORMATION
  Report Type: Spontaneous
  Country: US (occurrence: US)
  Receive Date: 20150929
  Receipt Date: 20150929
  Transmission Date: 20151125
  Serious: No
  Sender: FDA-Public Use
  Company Number: US-SA-2015SA129851

PATIENT
  Age: 53 Year
  Sex: Female

DRUGS (12)
  1. AUBAGIO [Suspect]
     Active Substance: TERIFLUNOMIDE
     Indication: MULTIPLE SCLEROSIS
     Route: 048
     Dates: start: 20141224
  2. RANITIDINE [Concomitant]
     Active Substance: RANITIDINE\RANITIDINE HYDROCHLORIDE
  3. DITROPAN [Concomitant]
     Active Substance: OXYBUTYNIN CHLORIDE
  4. VICODIN [Concomitant]
     Active Substance: ACETAMINOPHEN\HYDROCODONE BITARTRATE
  5. VITAMIN D [Concomitant]
     Active Substance: CHOLECALCIFEROL
  6. LOSARTAN. [Concomitant]
     Active Substance: LOSARTAN
  7. XANAX [Concomitant]
     Active Substance: ALPRAZOLAM
  8. PROTONIX [Concomitant]
     Active Substance: PANTOPRAZOLE SODIUM
  9. BENTYL [Concomitant]
     Active Substance: DICYCLOMINE HYDROCHLORIDE
  10. LIPITOR [Suspect]
     Active Substance: ATORVASTATIN CALCIUM
     Route: 065
  11. VITAMIN B12 [Concomitant]
     Active Substance: CYANOCOBALAMIN
  12. MECLIZINE [Concomitant]
     Active Substance: MECLIZINE\MECLIZINE HYDROCHLORIDE

REACTIONS (4)
  - Condition aggravated [Unknown]
  - Low density lipoprotein increased [Unknown]
  - Chest discomfort [Unknown]
  - Myalgia [Unknown]

NARRATIVE: CASE EVENT DATE: 20150818
